FAERS Safety Report 20746341 (Version 1)
Quarter: 2022Q2

REPORT INFORMATION
  Report Type: Spontaneous
  Country: US (occurrence: US)
  Receive Date: 20220425
  Receipt Date: 20220425
  Transmission Date: 20220721
  Serious: No
  Sender: FDA-Public Use
  Company Number: US-PFIZER INC-2021769453

PATIENT
  Age: 31 Year
  Sex: Female
  Weight: 68.04 kg

DRUGS (1)
  1. ZOLOFT [Suspect]
     Active Substance: SERTRALINE HYDROCHLORIDE
     Indication: Depression
     Dosage: 1 PILL FOR 5 DAYS
     Dates: start: 202106

REACTIONS (5)
  - Withdrawal syndrome [Unknown]
  - Insomnia [Unknown]
  - Nausea [Unknown]
  - Off label use [Unknown]
  - Product prescribing error [Unknown]

NARRATIVE: CASE EVENT DATE: 20210601
